FAERS Safety Report 13798043 (Version 1)
Quarter: 2017Q3

REPORT INFORMATION
  Report Type: Spontaneous
  Country: US (occurrence: US)
  Receive Date: 20170727
  Receipt Date: 20170727
  Transmission Date: 20171127
  Serious: Yes (Other)
  Sender: FDA-Public Use
  Company Number: US-PFIZER INC-2017321935

PATIENT
  Sex: Female

DRUGS (3)
  1. ENALAPRIL MALEATE. [Suspect]
     Active Substance: ENALAPRIL MALEATE
     Dosage: 10 MG, DAILY
  2. METOPROLOL. [Suspect]
     Active Substance: METOPROLOL
     Dosage: 50 MG, 2X/DAY
  3. LYRICA [Suspect]
     Active Substance: PREGABALIN
     Dosage: 150 MG, 3X/DAY

REACTIONS (33)
  - Dry skin [Unknown]
  - Discomfort [Unknown]
  - Raynaud^s phenomenon [Unknown]
  - Periorbital oedema [Unknown]
  - Paraesthesia [Unknown]
  - Dry mouth [Unknown]
  - Dyspepsia [Unknown]
  - Micturition urgency [Unknown]
  - Back pain [Unknown]
  - Bursitis [Unknown]
  - Insomnia [Unknown]
  - Photosensitivity reaction [Unknown]
  - Musculoskeletal stiffness [Unknown]
  - Synovitis [Unknown]
  - Joint effusion [Unknown]
  - Joint swelling [Unknown]
  - Arthralgia [Unknown]
  - Tenderness [Unknown]
  - Hypoaesthesia [Unknown]
  - Fatigue [Unknown]
  - Dry eye [Unknown]
  - Anxiety [Unknown]
  - Blood pressure increased [Unknown]
  - Temperature intolerance [Unknown]
  - Pain [Unknown]
  - Butterfly rash [Unknown]
  - Depressed mood [Unknown]
  - Peripheral swelling [Unknown]
  - Skin discolouration [Unknown]
  - Joint stiffness [Unknown]
  - Erythema [Unknown]
  - Lacrimal gland enlargement [Unknown]
  - Dysphonia [Unknown]
